FAERS Safety Report 20337584 (Version 2)
Quarter: 2022Q1

REPORT INFORMATION
  Report Type: Spontaneous
  Country: US (occurrence: US)
  Receive Date: 20220114
  Receipt Date: 20220221
  Transmission Date: 20220424
  Serious: No
  Sender: FDA-Public Use
  Company Number: US-SANOFI-00924087

PATIENT
  Age: 94 Year
  Sex: Female

DRUGS (1)
  1. AVAPRO [Suspect]
     Active Substance: IRBESARTAN
     Indication: Blood pressure measurement
     Dosage: 300 MG

REACTIONS (5)
  - Swollen tongue [Unknown]
  - Swelling face [Unknown]
  - Dyspnoea [Unknown]
  - Fear [Unknown]
  - Lip swelling [Unknown]
